FAERS Safety Report 4964288-0 (Version None)
Quarter: 2006Q2

REPORT INFORMATION
  Report Type: 
  Country: None (occurrence: None)
  Receive Date: 20060406
  Receipt Date: 20060405
  Transmission Date: 20061013
  Serious: Yes (Other)
  Sender: FDA-Public Use
  Company Number: AU-BRISTOL-MYERS SQUIBB COMPANY-13336896

PATIENT
  Age: 12 Month
  Sex: Female

DRUGS (1)
  1. MUCOMYST [Suspect]

REACTIONS (1)
  - CONVULSION [None]
